FAERS Safety Report 22400174 (Version 1)
Quarter: 2023Q2

REPORT INFORMATION
  Report Type: Spontaneous
  Country: ES (occurrence: ES)
  Receive Date: 20230602
  Receipt Date: 20230602
  Transmission Date: 20230721
  Serious: Yes (Other)
  Sender: FDA-Public Use
  Company Number: ES-SUN PHARMACEUTICAL INDUSTRIES LTD-2023R1-392624

PATIENT
  Age: 47 Year
  Sex: Female

DRUGS (3)
  1. OMEPRAZOLE [Suspect]
     Active Substance: OMEPRAZOLE
     Indication: Tooth abscess
     Dosage: 40 MILLIGRAM, DAILY
     Route: 048
  2. METRONIDAZOLE [Suspect]
     Active Substance: METRONIDAZOLE
     Indication: Tooth abscess
     Dosage: UNK (125MG (TWO TABLETS EVERY EIGHT HOURS))
     Route: 048
  3. METAMIZOLE [Suspect]
     Active Substance: METAMIZOLE
     Indication: Tooth abscess
     Dosage: UNK (575MG (ONE CAPSULE EVERY EIGHT HOURS))
     Route: 048

REACTIONS (1)
  - Hypersensitivity [Unknown]
